FAERS Safety Report 7012062-6 (Version None)
Quarter: 2010Q3

REPORT INFORMATION
  Report Type: 
  Country: None (occurrence: None)
  Receive Date: 20100924
  Receipt Date: 20100913
  Transmission Date: 20110219
  Serious: Yes (Other)
  Sender: FDA-Public Use
  Company Number: FR-JNJFOC-20100904701

PATIENT
  Age: 51 Year
  Sex: Female

DRUGS (3)
  1. PREZISTA [Suspect]
     Indication: HIV TEST POSITIVE
     Route: 048
     Dates: start: 20100104, end: 20100707
  2. NORVIR [Suspect]
     Indication: HIV TEST POSITIVE
     Route: 048
     Dates: start: 20100104, end: 20100707
  3. ISENTRESS [Suspect]
     Indication: HIV TEST POSITIVE
     Route: 048

REACTIONS (3)
  - ASTHENIA [None]
  - DYSLIPIDAEMIA [None]
  - WEIGHT INCREASED [None]
